FAERS Safety Report 7502139-0 (Version None)
Quarter: 2011Q2

REPORT INFORMATION
  Report Type: 
  Country: None (occurrence: None)
  Receive Date: 20110523
  Receipt Date: 20110523
  Transmission Date: 20111010
  Serious: Yes (Other)
  Sender: FDA-Public Use
  Company Number: None

PATIENT
  Age: 65 Year
  Sex: Female
  Weight: 49.8957 kg

DRUGS (1)
  1. LEVAQUIN [Suspect]
     Indication: RESPIRATORY TRACT INFECTION BACTERIAL
     Dosage: 1 PILL DAILY PO
     Route: 048
     Dates: start: 20110513, end: 20110516

REACTIONS (7)
  - MUSCULOSKELETAL DISCOMFORT [None]
  - TENDON PAIN [None]
  - GAIT DISTURBANCE [None]
  - NIGHT SWEATS [None]
  - MUSCULOSKELETAL PAIN [None]
  - DECREASED APPETITE [None]
  - JOINT SWELLING [None]
